FAERS Safety Report 15628614 (Version 1)
Quarter: 2018Q4

REPORT INFORMATION
  Report Type: Spontaneous
  Country: FI (occurrence: FI)
  Receive Date: 20181116
  Receipt Date: 20181116
  Transmission Date: 20190205
  Serious: Yes (Other)
  Sender: FDA-Public Use
  Company Number: PHHY2018FI157024

PATIENT
  Sex: Female

DRUGS (1)
  1. SANDIMMUN NEORAL [Suspect]
     Active Substance: CYCLOSPORINE
     Indication: ARTHRITIS REACTIVE
     Dosage: UNK
     Route: 065

REACTIONS (2)
  - Facial paralysis [Recovered/Resolved]
  - Neurological symptom [Recovered/Resolved]
